FAERS Safety Report 8410494-2 (Version None)
Quarter: 2012Q2

REPORT INFORMATION
  Report Type: 
  Country: None (occurrence: None)
  Receive Date: 20120529
  Receipt Date: 20060123
  Transmission Date: 20120825
  Serious: Yes (Death)
  Sender: FDA-Public Use
  Company Number: 15691-USA-06-0242

PATIENT
  Age: 65 Year
  Sex: Male

DRUGS (23)
  1. TOLVAPTAN (TOLVAPTAN(V4.)) 30MG [Suspect]
     Indication: CARDIAC FAILURE CONGESTIVE
     Dosage: 30 MG, QD, ORAL
     Route: 048
     Dates: start: 20031104
  2. SINGULAIR  ^DIECKMANN^ (MONTELASTM SODIUM) [Concomitant]
  3. ALLOPURINOL [Concomitant]
  4. ENALAPRIL MALEATE [Concomitant]
  5. XANAX /USA/ (ALPRAZOLAM) [Concomitant]
  6. COLCHICINE [Concomitant]
  7. ACIPHEX [Concomitant]
  8. COREG [Concomitant]
  9. SULINDAC [Concomitant]
  10. TRIAMCINOLONE ^LEVICA^ (TRIAMCINOLONE) [Concomitant]
  11. ULTRACET [Concomitant]
  12. ALBUTEROL SULFATE [Concomitant]
  13. DIGOXIN (DOGOXIN) [Concomitant]
  14. FUROSEMIDE [Concomitant]
  15. ASCORBIC ACID [Concomitant]
  16. AMARYL /SWE/ (GLIMEPIRIDE) [Concomitant]
  17. LANTUS [Concomitant]
  18. MULTIVITAMIN ^LAPPE^ (VITAMINS NOS) [Concomitant]
  19. VIAGRA /SWE/ (SILDENAFIL CITRATE) [Concomitant]
  20. AUGMENTIN /SCH/ (AMOXICILLIN, CLAVULANATE POTASSIUM) [Concomitant]
  21. COUMADIN [Concomitant]
  22. POTASSIUM CHLORIDE [Concomitant]
  23. ZAROXOLYN [Concomitant]

REACTIONS (2)
  - CONDITION AGGRAVATED [None]
  - CARDIAC FAILURE CONGESTIVE [None]
